FAERS Safety Report 24794363 (Version 1)
Quarter: 2024Q4

REPORT INFORMATION
  Report Type: Spontaneous
  Country: LV (occurrence: LV)
  Receive Date: 20241231
  Receipt Date: 20241231
  Transmission Date: 20250114
  Serious: Yes (Hospitalization, Other)
  Sender: RANBAXY
  Company Number: LV-SUN PHARMACEUTICAL INDUSTRIES LTD-2024R1-487090

PATIENT
  Age: 60 Year
  Sex: Male

DRUGS (1)
  1. DICLOFENAC [Suspect]
     Active Substance: DICLOFENAC
     Indication: Osteoarthritis
     Dosage: UNK  150-300  MG  DAILY
     Route: 065

REACTIONS (2)
  - Renal tubular necrosis [Recovering/Resolving]
  - Glomerulonephritis minimal lesion [Recovering/Resolving]
